FAERS Safety Report 8851181 (Version 1)
Quarter: 2012Q4

REPORT INFORMATION
  Report Type: 
  Country: US (occurrence: US)
  Receive Date: 20121019
  Receipt Date: 20121019
  Transmission Date: 20130627
  Serious: Yes (Other)
  Sender: FDA-Public Use
  Company Number: US-BRISTOL-MYERS SQUIBB COMPANY-16743882

PATIENT
  Age: 82 Year
  Sex: Female

DRUGS (11)
  1. YERVOY [Suspect]
     Indication: METASTATIC MALIGNANT MELANOMA
     Dosage: Last dose:23Nov11
     Dates: start: 20110921
  2. VITAMINS [Concomitant]
  3. ISOSORBIDE [Concomitant]
  4. METOPROLOL [Concomitant]
  5. POTASSIUM [Concomitant]
  6. VITAMIN C [Concomitant]
  7. COUMADIN [Concomitant]
     Indication: ATRIAL FIBRILLATION
  8. TEARS NATURALE [Concomitant]
  9. LOMOTIL [Concomitant]
  10. ZINC OXIDE [Concomitant]
  11. LAXATIVES [Concomitant]

REACTIONS (1)
  - Malignant neoplasm progression [Not Recovered/Not Resolved]
